FAERS Safety Report 5306714-3 (Version None)
Quarter: 2007Q1

REPORT INFORMATION
  Report Type: 
  Country: None (occurrence: None)
  Receive Date: 20070201
  Receipt Date: 20061203
  Transmission Date: 20070707
  Serious: No
  Sender: FDA-Public Use
  Company Number: 2006PV026236

PATIENT
  Age: 65 Year
  Sex: Female

DRUGS (5)
  1. BYETTA [Suspect]
     Indication: DIABETES MELLITUS NON-INSULIN-DEPENDENT
     Dosage: SEE IMAGE
     Dates: start: 20061001, end: 20061101
  2. BYETTA [Suspect]
     Indication: DIABETES MELLITUS NON-INSULIN-DEPENDENT
     Dosage: SEE IMAGE
     Dates: start: 20061101
  3. LANTUS [Concomitant]
  4. METFORMIN HCL [Concomitant]
  5. SYMLIN [Concomitant]

REACTIONS (4)
  - ASTHENIA [None]
  - DIARRHOEA INFECTIOUS [None]
  - FOOD POISONING [None]
  - WEIGHT DECREASED [None]
